FAERS Safety Report 20719252 (Version 1)
Quarter: 2022Q2

REPORT INFORMATION
  Report Type: Spontaneous
  Country: US (occurrence: None)
  Receive Date: 20220415
  Receipt Date: 20220415
  Transmission Date: 20220721
  Serious: Yes (Death)
  Sender: FDA-Public Use
  Company Number: None

PATIENT
  Age: 65 Year
  Sex: Male

DRUGS (2)
  1. IDHIFA [Suspect]
     Active Substance: ENASIDENIB MESYLATE
     Indication: Chronic myeloid leukaemia
     Dosage: 100MG DAILY ORAL?
     Route: 048
     Dates: start: 202112, end: 202204
  2. IDHIFA [Suspect]
     Active Substance: ENASIDENIB MESYLATE
     Indication: Philadelphia chromosome positive

REACTIONS (1)
  - Death [None]

NARRATIVE: CASE EVENT DATE: 20220401
